FAERS Safety Report 14277747 (Version 1)
Quarter: 2017Q4

REPORT INFORMATION
  Report Type: Spontaneous
  Country: US (occurrence: US)
  Receive Date: 20171212
  Receipt Date: 20171212
  Transmission Date: 20180321
  Serious: No
  Sender: FDA-Public Use
  Company Number: US-PFIZER INC-2017525889

PATIENT
  Age: 45 Year
  Sex: Male
  Weight: 193 kg

DRUGS (3)
  1. GABAPENTIN. [Suspect]
     Active Substance: GABAPENTIN
     Indication: NEUROPATHY PERIPHERAL
     Dosage: 1600 MG, 3X/DAY (TAKES 2, 3X/DAY)
     Route: 048
  2. SOMAVERT [Concomitant]
     Active Substance: PEGVISOMANT
     Indication: PITUITARY TUMOUR
     Dosage: 30 MG, DAILY
     Route: 058
  3. GABAPENTIN. [Suspect]
     Active Substance: GABAPENTIN
     Indication: SEIZURE

REACTIONS (3)
  - Paraesthesia [Not Recovered/Not Resolved]
  - Prescribed overdose [Unknown]
  - Pain in extremity [Not Recovered/Not Resolved]
